FAERS Safety Report 7129245-7 (Version None)
Quarter: 2010Q4

REPORT INFORMATION
  Report Type: 
  Country: None (occurrence: None)
  Receive Date: 20101112
  Receipt Date: 20100629
  Transmission Date: 20110411
  Serious: Yes (Other)
  Sender: FDA-Public Use
  Company Number: TRP_07381_2010

PATIENT
  Age: 51 Year
  Sex: Female

DRUGS (2)
  1. RIBAVIRIN [Suspect]
     Indication: HEPATITIS C
     Dosage: (1200 MG, DAILY [TEMPORARILY DISCONTINUED FOR SEVERAL DAYS])
  2. PEGYLATED INTERFERON ALFA-2A [Suspect]
     Indication: HEPATITIS C
     Dosage: (180 UG 1X/WEEK)

REACTIONS (12)
  - ALANINE AMINOTRANSFERASE INCREASED [None]
  - ASPARTATE AMINOTRANSFERASE INCREASED [None]
  - BLISTER [None]
  - DISCOMFORT [None]
  - HAEMOGLOBIN DECREASED [None]
  - PLATELET COUNT DECREASED [None]
  - RASH ERYTHEMATOUS [None]
  - RASH PAPULAR [None]
  - RASH PRURITIC [None]
  - RED BLOOD CELL COUNT DECREASED [None]
  - SKIN LESION [None]
  - WHITE BLOOD CELL COUNT DECREASED [None]
